FAERS Safety Report 20419276 (Version 1)
Quarter: 2022Q1

REPORT INFORMATION
  Report Type: Spontaneous
  Country: EG (occurrence: EG)
  Receive Date: 20220203
  Receipt Date: 20220203
  Transmission Date: 20220423
  Serious: Yes (Other)
  Sender: FDA-Public Use
  Company Number: EG-Accord-252217

PATIENT
  Age: 36 Year
  Sex: Male

DRUGS (3)
  1. OXALIPLATIN [Suspect]
     Active Substance: OXALIPLATIN
     Indication: Rectal adenocarcinoma
     Dosage: CYCLED EVERY 3 WEEKS
     Dates: start: 202010
  2. CAPECITABINE [Concomitant]
     Active Substance: CAPECITABINE
     Indication: Rectal adenocarcinoma
     Dosage: 1,000 MG/M2 CYCLED EVERY 3 WEEKS
     Dates: start: 202010, end: 202104
  3. IMATINIB [Concomitant]
     Active Substance: IMATINIB
     Indication: Rectal adenocarcinoma
     Dosage: INCREASED AFTER 2 MONTHS TO 400 MG ONCE DAILY
     Route: 048
     Dates: start: 202010

REACTIONS (1)
  - Neurotoxicity [Unknown]
